FAERS Safety Report 26187866 (Version 1)
Quarter: 2025Q4

REPORT INFORMATION
  Report Type: Spontaneous
  Country: JP (occurrence: JP)
  Receive Date: 20251222
  Receipt Date: 20251222
  Transmission Date: 20260118
  Serious: Yes (Other)
  Sender: BRISTOL-MYERS SQUIBB COMPANY
  Company Number: JP-BRISTOL-MYERS SQUIBB COMPANY-2025-170702

PATIENT

DRUGS (1)
  1. REBLOZYL [Suspect]
     Active Substance: LUSPATERCEPT-AAMT
     Indication: Anaemia of malignant disease
     Route: 058

REACTIONS (5)
  - Anaemia [Unknown]
  - Drug ineffective [Unknown]
  - Extramedullary haemopoiesis [Unknown]
  - Hepatosplenomegaly [Unknown]
  - Myelofibrosis [Unknown]
